FAERS Safety Report 8382503-0 (Version None)
Quarter: 2012Q2

REPORT INFORMATION
  Report Type: 
  Country: None (occurrence: None)
  Receive Date: 20120524
  Receipt Date: 20120521
  Transmission Date: 20120825
  Serious: Yes (Other)
  Sender: FDA-Public Use
  Company Number: US-JNJFOC-20120516772

PATIENT
  Sex: Female
  Weight: 82.1 kg

DRUGS (3)
  1. SIMPONI [Suspect]
     Indication: RHEUMATOID ARTHRITIS
     Route: 058
     Dates: start: 20120501
  2. ENBREL [Suspect]
     Indication: RHEUMATOID ARTHRITIS
     Route: 058
     Dates: start: 20120301, end: 20120401
  3. SIMPONI [Suspect]
     Route: 058
     Dates: start: 20110101, end: 20120201

REACTIONS (8)
  - INFECTION [None]
  - INCORRECT STORAGE OF DRUG [None]
  - DRUG INEFFECTIVE [None]
  - UNDERDOSE [None]
  - INFLUENZA [None]
  - DEVICE MALFUNCTION [None]
  - BRONCHITIS [None]
  - ARTHRALGIA [None]
